FAERS Safety Report 9523547 (Version 1)
Quarter: 2013Q3

REPORT INFORMATION
  Report Type: Spontaneous
  Country: DE (occurrence: DE)
  Receive Date: 20130913
  Receipt Date: 20130913
  Transmission Date: 20140515
  Serious: Yes (Other)
  Sender: FDA-Public Use
  Company Number: DE-BAXTER-2013BAX035850

PATIENT
  Sex: Male

DRUGS (4)
  1. ENDOXAN 1G [Suspect]
     Indication: FOETAL EXPOSURE TIMING UNSPECIFIED
     Route: 064
  2. ENDOXAN 1G [Suspect]
     Route: 064
  3. DOCETAXEL [Suspect]
     Indication: FOETAL EXPOSURE TIMING UNSPECIFIED
     Route: 064
  4. DOCETAXEL [Suspect]
     Route: 064

REACTIONS (5)
  - Foetal exposure during pregnancy [Recovered/Resolved]
  - Foetal growth restriction [Recovered/Resolved]
  - Premature baby [Unknown]
  - Hypoglycaemia [Recovered/Resolved]
  - Thrombocytopenia [Unknown]
